FAERS Safety Report 6417830-7 (Version None)
Quarter: 2009Q4

REPORT INFORMATION
  Report Type: 
  Country: None (occurrence: None)
  Receive Date: 20091026
  Receipt Date: 20091013
  Transmission Date: 20100525
  Serious: Yes (Other)
  Sender: FDA-Public Use
  Company Number: ADR37712009

PATIENT
  Age: 70 Year
  Sex: Female

DRUGS (1)
  1. SIMVASTATIN [Suspect]
     Dosage: 40 MG ORAL
     Route: 048
     Dates: start: 20060612, end: 20080302

REACTIONS (1)
  - NIGHTMARE [None]
